FAERS Safety Report 18017065 (Version 1)
Quarter: 2020Q3

REPORT INFORMATION
  Report Type: Report from Study
  Country: None (occurrence: CA)
  Receive Date: 20200714
  Receipt Date: 20200714
  Transmission Date: 20201103
  Serious: Yes (Other)
  Sender: FDA-Public Use
  Company Number: CA-ABBVIE-20K-028-3478828-00

PATIENT
  Sex: Female

DRUGS (1)
  1. RINVOQ [Suspect]
     Active Substance: UPADACITINIB
     Indication: RHEUMATOID ARTHRITIS
     Route: 048
     Dates: start: 20200311, end: 20200316

REACTIONS (10)
  - Post procedural complication [Unknown]
  - Trigger finger [Unknown]
  - Hyperhidrosis [Unknown]
  - Decreased appetite [Unknown]
  - Abnormal loss of weight [Unknown]
  - Flank pain [Unknown]
  - Haematuria [Unknown]
  - Night sweats [Unknown]
  - Nephrectomy [Unknown]
  - Renal mass [Unknown]

NARRATIVE: CASE EVENT DATE: 2020
